FAERS Safety Report 5154907-0 (Version None)
Quarter: 2006Q4

REPORT INFORMATION
  Report Type: 
  Country: None (occurrence: None)
  Receive Date: 20061121
  Receipt Date: 20061108
  Transmission Date: 20070319
  Serious: Yes (Hospitalization)
  Sender: FDA-Public Use
  Company Number: 2006PK02343

PATIENT
  Age: 53 Year
  Sex: Male

DRUGS (14)
  1. BELOC ZOK [Interacting]
     Dosage: SINCE MANY YEARS
     Route: 048
  2. SOLIAN [Suspect]
     Route: 048
     Dates: start: 20060630, end: 20060630
  3. SOLIAN [Suspect]
     Route: 048
     Dates: start: 20060701, end: 20060702
  4. SOLIAN [Suspect]
     Route: 048
     Dates: start: 20060703, end: 20060724
  5. VENLAFAXINE HCL [Suspect]
     Route: 048
     Dates: start: 20060713, end: 20060713
  6. VENLAFAXINE HCL [Suspect]
     Route: 048
     Dates: start: 20060714, end: 20060721
  7. PANTOZOL [Concomitant]
     Route: 048
     Dates: start: 20060630
  8. AKINETON [Concomitant]
     Route: 048
     Dates: start: 20060622
  9. ENAHEXAL [Concomitant]
     Dosage: SINCE MANY YEARS
     Route: 048
  10. INNOHEP [Concomitant]
     Route: 058
     Dates: start: 20050501
  11. DIAZEPAM [Concomitant]
     Route: 048
     Dates: start: 20060622, end: 20060723
  12. DIAZEPAM [Concomitant]
     Route: 048
     Dates: start: 20060624
  13. CYMBALTA [Concomitant]
     Dates: end: 20060713
  14. ZYPREXA [Concomitant]
     Dates: end: 20060713

REACTIONS (2)
  - DRUG INTERACTION [None]
  - NEUROLEPTIC MALIGNANT SYNDROME [None]
